FAERS Safety Report 5740129-9 (Version None)
Quarter: 2008Q2

REPORT INFORMATION
  Report Type: 
  Country: None (occurrence: None)
  Receive Date: 20080513
  Receipt Date: 20080430
  Transmission Date: 20081010
  Serious: Yes (Hospitalization)
  Sender: FDA-Public Use
  Company Number: DSA_28307_2006

PATIENT
  Age: 40 Year
  Sex: Female

DRUGS (2)
  1. ENALAPRIL MALEATE [Suspect]
     Indication: HYPERTENSION
     Dosage: (5 MG QD ORAL)
     Route: 048
     Dates: start: 20060116, end: 20060601
  2. BISOPROLOL [Concomitant]

REACTIONS (4)
  - ASCITES [None]
  - EOSINOPHILIA [None]
  - LIPOMATOSIS [None]
  - SMALL BOWEL ANGIOEDEMA [None]
